FAERS Safety Report 24299657 (Version 5)
Quarter: 2025Q3

REPORT INFORMATION
  Report Type: Spontaneous
  Country: US (occurrence: US)
  Receive Date: 20240909
  Receipt Date: 20250814
  Transmission Date: 20251020
  Serious: No
  Sender: PFIZER
  Company Number: US-PFIZER INC-PV202400117889

PATIENT
  Age: 17 Year
  Sex: Male

DRUGS (4)
  1. LITFULO [Suspect]
     Active Substance: RITLECITINIB TOSYLATE
     Dosage: 50 MG, 1X/DAY
     Route: 048
  2. LITFULO [Suspect]
     Active Substance: RITLECITINIB TOSYLATE
     Dosage: 50 MG, 1X/DAY (TAKE 1 CAPSULE BY MOUTH EVERY DAY)
     Route: 048
     Dates: start: 20240911
  3. LITFULO [Suspect]
     Active Substance: RITLECITINIB TOSYLATE
     Dosage: TAKE 50 MG ( 1 CAPSULE ) BY MOUTH DAILY
     Route: 048
  4. LITFULO [Suspect]
     Active Substance: RITLECITINIB TOSYLATE
     Dosage: 50 MG, 1X/DAY (TAKE 1 CAPSULE BY MOUTH DAILY)
     Route: 048
     Dates: start: 20240911

REACTIONS (4)
  - Alopecia [Not Recovered/Not Resolved]
  - Condition aggravated [Unknown]
  - Drug ineffective [Unknown]
  - Impaired quality of life [Not Recovered/Not Resolved]
